FAERS Safety Report 7132032-7 (Version None)
Quarter: 2010Q4

REPORT INFORMATION
  Report Type: 
  Country: None (occurrence: None)
  Receive Date: 20101202
  Receipt Date: 20100602
  Transmission Date: 20110411
  Serious: Yes (Other)
  Sender: FDA-Public Use
  Company Number: CA-ASTRAZENECA-2010SE25557

PATIENT
  Age: 81 Year
  Sex: Male

DRUGS (8)
  1. ZOLADEX [Suspect]
     Route: 058
  2. APO-SALVENT [Concomitant]
     Route: 055
  3. ASPIRIN [Concomitant]
     Route: 065
  4. CADUET [Concomitant]
     Route: 065
  5. ELOCON [Concomitant]
     Route: 065
  6. FLOVENT HFA [Concomitant]
     Route: 055
  7. LEVOBUNOLOL HYDROCHLORIDE [Concomitant]
     Route: 047
  8. SPIRIVA [Concomitant]
     Route: 055

REACTIONS (4)
  - FATIGUE [None]
  - INSOMNIA [None]
  - OVERDOSE [None]
  - QUALITY OF LIFE DECREASED [None]
